FAERS Safety Report 18664207 (Version 1)
Quarter: 2020Q4

REPORT INFORMATION
  Report Type: Spontaneous
  Country: GB (occurrence: GB)
  Receive Date: 20201225
  Receipt Date: 20201225
  Transmission Date: 20210114
  Serious: Yes (Other)
  Sender: FDA-Public Use
  Company Number: GB-TEVA-2020-GB-1860835

PATIENT
  Age: 77 Year
  Sex: Female
  Weight: 70 kg

DRUGS (6)
  1. SIMVASTATIN. [Concomitant]
     Active Substance: SIMVASTATIN
     Dosage: UNIT DOSE : 40 MG
  2. FELODIPINE. [Concomitant]
     Active Substance: FELODIPINE
     Dosage: UNIT DOSE : 10 MG
  3. CITALOPRAM [Concomitant]
     Active Substance: CITALOPRAM HYDROBROMIDE
     Dosage: UNIT DOSE : 10 MG
  4. METFORMIN [Concomitant]
     Active Substance: METFORMIN HYDROCHLORIDE
     Dosage: TAKE ONE DAILY FOR ONE WEEK THEN INCREASE TO TWICE DAILY, UNIT DOSE : 500 MG, MODIFIED-RELEASE FILM-
     Route: 048
     Dates: start: 20201103
  5. ACETYLSALICYLIC ACID [Concomitant]
     Active Substance: ASPIRIN
     Dosage: UNIT DOSE : 75 MG
  6. OMEPRAZOLE. [Suspect]
     Active Substance: OMEPRAZOLE
     Dosage: UNIT DOSE : 20 MG
     Route: 048
     Dates: start: 20201006, end: 20201125

REACTIONS (1)
  - Renal impairment [Unknown]
